FAERS Safety Report 25616717 (Version 1)
Quarter: 2025Q3

REPORT INFORMATION
  Report Type: Spontaneous
  Country: EU (occurrence: EU)
  Receive Date: 20250729
  Receipt Date: 20250729
  Transmission Date: 20251021
  Serious: Yes (Hospitalization)
  Sender: CHEPLAPHARM
  Company Number: None

PATIENT
  Age: 32 Year
  Sex: Male

DRUGS (11)
  1. OLANZAPINE [Suspect]
     Active Substance: OLANZAPINE
  2. ESCITALOPRAM [Suspect]
     Active Substance: ESCITALOPRAM OXALATE
  3. VALPROATE [Suspect]
     Active Substance: VALPROIC ACID
  4. ATOMOXETINE [Suspect]
     Active Substance: ATOMOXETINE
     Indication: Tachycardia
     Dosage: DAILY DOSE: 80 MILLIGRAM
  5. FLUVOXAMINE [Suspect]
     Active Substance: FLUVOXAMINE
  6. MIRTAZAPINE [Suspect]
     Active Substance: MIRTAZAPINE
  7. TRAZODONE [Suspect]
     Active Substance: TRAZODONE HYDROCHLORIDE
  8. LAMOTRIGINE [Suspect]
     Active Substance: LAMOTRIGINE
  9. CHLORPROTHIXENE [Suspect]
     Active Substance: CHLORPROTHIXENE
  10. SERTRALINE [Suspect]
     Active Substance: SERTRALINE HYDROCHLORIDE
  11. RISPERIDONE [Suspect]
     Active Substance: RISPERIDONE

REACTIONS (1)
  - Suicidal ideation [Unknown]
